FAERS Safety Report 20477176 (Version 1)
Quarter: 2022Q1

REPORT INFORMATION
  Report Type: Report from Study
  Country: US (occurrence: US)
  Receive Date: 20220215
  Receipt Date: 20220215
  Transmission Date: 20220423
  Serious: Yes (Other)
  Sender: FDA-Public Use
  Company Number: US-GILEAD-2022-0564550

PATIENT
  Age: 78 Year
  Sex: Male

DRUGS (5)
  1. IDELALISIB [Suspect]
     Active Substance: IDELALISIB
     Indication: Mantle cell lymphoma
     Dosage: 150 MG, BID
     Route: 048
     Dates: start: 20211025
  2. PREDNISONE [Concomitant]
     Active Substance: PREDNISONE
  3. BACTRIM [Concomitant]
     Active Substance: SULFAMETHOXAZOLE\TRIMETHOPRIM
  4. VALACYCLOVIR HYDROCHLORIDE [Concomitant]
     Active Substance: VALACYCLOVIR HYDROCHLORIDE
  5. VANCOMYCIN [Concomitant]
     Active Substance: VANCOMYCIN

REACTIONS (8)
  - Muscle spasms [Unknown]
  - Muscle spasms [Unknown]
  - Weight decreased [Unknown]
  - Diarrhoea [Unknown]
  - Asthenia [Unknown]
  - Irritable bowel syndrome [Unknown]
  - Prostatomegaly [Unknown]
  - Off label use [Not Recovered/Not Resolved]

NARRATIVE: CASE EVENT DATE: 20211025
